FAERS Safety Report 24712506 (Version 1)
Quarter: 2024Q4

REPORT INFORMATION
  Report Type: Spontaneous
  Country: CY (occurrence: None)
  Receive Date: 20241207
  Receipt Date: 20241207
  Transmission Date: 20250115
  Serious: Yes (Other)
  Sender: Public
  Company Number: None

PATIENT
  Age: 28 Year
  Sex: Male

DRUGS (1)
  1. RITALIN [Suspect]
     Active Substance: METHYLPHENIDATE HYDROCHLORIDE
     Indication: Attention deficit hyperactivity disorder
     Dates: start: 20220602, end: 20240516

REACTIONS (8)
  - Paraphilia [None]
  - Social problem [None]
  - Paranoia [None]
  - Personality change [None]
  - Depression [None]
  - Suicidal ideation [None]
  - Judgement impaired [None]
  - Feeling abnormal [None]

NARRATIVE: CASE EVENT DATE: 20241207
